FAERS Safety Report 9175418 (Version 2)
Quarter: 2013Q2

REPORT INFORMATION
  Report Type: Report from Study
  Country: AU (occurrence: AU)
  Receive Date: 20130320
  Receipt Date: 20130617
  Transmission Date: 20140414
  Serious: Yes (Other)
  Sender: FDA-Public Use
  Company Number: AU-ROCHE-1203530

PATIENT
  Age: 54 Year
  Sex: Male

DRUGS (5)
  1. ACTEMRA [Suspect]
     Indication: RHEUMATOID ARTHRITIS
     Route: 042
     Dates: start: 20101111
  2. LIPITOR [Concomitant]
     Route: 048
  3. HYDROCHLOROTHIAZIDE [Concomitant]
     Route: 048
  4. ACTONEL [Concomitant]
     Route: 048
  5. CARTIA (AUSTRALIA) [Concomitant]
     Route: 048

REACTIONS (3)
  - Limb injury [Recovered/Resolved]
  - Arthralgia [Recovering/Resolving]
  - Paraesthesia [Not Recovered/Not Resolved]
